FAERS Safety Report 6819677-6 (Version None)
Quarter: 2010Q3

REPORT INFORMATION
  Report Type: 
  Country: None (occurrence: None)
  Receive Date: 20100707
  Receipt Date: 20100630
  Transmission Date: 20110219
  Serious: Yes (Hospitalization)
  Sender: FDA-Public Use
  Company Number: US-BRISTOL-MYERS SQUIBB COMPANY-15173792

PATIENT
  Age: 69 Year
  Sex: Male
  Weight: 141 kg

DRUGS (16)
  1. COUMADIN [Suspect]
  2. VELCADE [Concomitant]
     Indication: MULTIPLE MYELOMA
     Dosage: CYCLIC DAYS 1,4,8 AND 11 .REDUCED TO 1MG/M2 FROM 26-JAN-10 TO 09-APR-10.
     Route: 042
     Dates: start: 20091218, end: 20100409
  3. MELPHALAN HYDROCHLORIDE [Concomitant]
     Indication: MULTIPLE MYELOMA
     Dosage: ON DAYS 1-4 EVERY OTHER CYCLE STARTED ON 18DEC2009,REDUCED TO 4.5MG/M2 FROM 30MAR10 TO 02-APR-10.
     Route: 048
     Dates: start: 20091218, end: 20100402
  4. PREDNISONE TAB [Concomitant]
     Indication: MULTIPLE MYELOMA
     Dosage: ON DAYS 1-4 EVERY OTHER CYCLE FROM 18DEC2009 TO 02APR2010 OF A 21 DAY CYCLE.
     Route: 048
     Dates: start: 20091218, end: 20100402
  5. LASIX [Concomitant]
  6. POTASSIUM CHLORIDE [Concomitant]
  7. ASPIRIN [Concomitant]
  8. PRAVACHOL [Concomitant]
  9. BENICAR [Concomitant]
  10. LOPRESSOR [Concomitant]
  11. MAGNESIUM OXIDE [Concomitant]
  12. ADVAIR DISKUS 100/50 [Concomitant]
  13. XALATAN [Concomitant]
  14. ALPHAGAN [Concomitant]
  15. ALBUTEROL [Concomitant]
  16. GEMFIBROZIL [Concomitant]

REACTIONS (6)
  - HYPOTENSION [None]
  - INTERNATIONAL NORMALISED RATIO INCREASED [None]
  - MUSCULOSKELETAL PAIN [None]
  - PNEUMONITIS [None]
  - RENAL FAILURE ACUTE [None]
  - THROMBOCYTOPENIA [None]
